FAERS Safety Report 8435294-9 (Version None)
Quarter: 2012Q2

REPORT INFORMATION
  Report Type: 
  Country: None (occurrence: None)
  Receive Date: 20120614
  Receipt Date: 20120601
  Transmission Date: 20120825
  Serious: Yes (Death, Other)
  Sender: FDA-Public Use
  Company Number: IT-CELGENEUS-083-21880-11113556

PATIENT

DRUGS (2)
  1. REVLIMID [Suspect]
     Indication: LYMPHOMA
     Dosage: 25 MILLIGRAM
     Route: 048
     Dates: start: 20100407, end: 20100401
  2. DEXAMETHASONE [Concomitant]
     Indication: LYMPHOMA
     Route: 065

REACTIONS (2)
  - HERPES ZOSTER [None]
  - LYMPHOMA [None]
